FAERS Safety Report 19262014 (Version 1)
Quarter: 2021Q2

REPORT INFORMATION
  Report Type: Spontaneous
  Country: NL (occurrence: NL)
  Receive Date: 20210516
  Receipt Date: 20210516
  Transmission Date: 20210717
  Serious: Yes (Death, Life-Threatening)
  Sender: FDA-Public Use
  Company Number: NL-TEVA-2021-NL-1910381

PATIENT
  Age: 57 Year
  Sex: Female
  Weight: 107 kg

DRUGS (2)
  1. ETHINYLESTRADIOL/LEVONORGESTREL TABLET 30/150UG / BRAND NAME NOT SPECI [Suspect]
     Active Substance: ETHINYL ESTRADIOL\LEVONORGESTREL
     Indication: MENOPAUSAL SYMPTOMS
     Dosage: 3 WEEKS 1D1T, THEN 1 STOP WEEK
     Dates: start: 20191108, end: 20200907
  2. TRIAMTEREEN/HYDROCHLOORTHIAZIDE TABLET 50/25MG / BRAND NAME NOT SPECIF [Concomitant]
     Dosage: 50/25 MG (MILLIGRAM) , THERAPY START DATE AND END DATE : ASKU

REACTIONS (1)
  - Pulmonary embolism [Fatal]

NARRATIVE: CASE EVENT DATE: 20200907
